FAERS Safety Report 6199725-X (Version None)
Quarter: 2009Q2

REPORT INFORMATION
  Report Type: 
  Country: None (occurrence: None)
  Receive Date: 20090520
  Receipt Date: 20090520
  Transmission Date: 20091009
  Serious: Yes (Hospitalization)
  Sender: FDA-Public Use
  Company Number: None

PATIENT
  Sex: Male
  Weight: 71.4 kg

DRUGS (1)
  1. CISPLATIN [Suspect]
     Dosage: 380 MG
     Dates: end: 20081002

REACTIONS (3)
  - HYPOVOLAEMIA [None]
  - NAUSEA [None]
  - VOMITING [None]
